FAERS Safety Report 12794838 (Version 2)
Quarter: 2017Q2

REPORT INFORMATION
  Report Type: Spontaneous
  Country: US (occurrence: US)
  Receive Date: 20160929
  Receipt Date: 20170407
  Transmission Date: 20170830
  Serious: No
  Sender: FDA-Public Use
  Company Number: US-JNJFOC-20160917735

PATIENT
  Age: 9 Year
  Sex: Male

DRUGS (28)
  1. RISPERDAL [Suspect]
     Active Substance: RISPERIDONE
     Indication: AGGRESSION
     Route: 048
     Dates: start: 201011, end: 201108
  2. RISPERDAL [Suspect]
     Active Substance: RISPERIDONE
     Indication: NEGATIVISM
     Route: 048
     Dates: start: 201111, end: 201203
  3. RISPERDAL [Suspect]
     Active Substance: RISPERIDONE
     Indication: AGGRESSION
     Route: 048
     Dates: start: 201109
  4. RISPERDAL [Suspect]
     Active Substance: RISPERIDONE
     Indication: AGGRESSION
     Route: 048
     Dates: start: 200409
  5. RISPERDAL [Suspect]
     Active Substance: RISPERIDONE
     Indication: NEGATIVISM
     Route: 048
     Dates: start: 200303, end: 200306
  6. RISPERDAL [Suspect]
     Active Substance: RISPERIDONE
     Indication: NEGATIVISM
     Route: 048
     Dates: start: 201109
  7. RISPERDAL [Suspect]
     Active Substance: RISPERIDONE
     Indication: AGGRESSION
     Route: 048
     Dates: start: 200404
  8. RISPERDAL [Suspect]
     Active Substance: RISPERIDONE
     Indication: AGGRESSION
     Route: 048
     Dates: start: 201111, end: 201203
  9. RISPERDAL [Suspect]
     Active Substance: RISPERIDONE
     Indication: AGGRESSION
     Route: 048
     Dates: start: 200303, end: 200306
  10. RISPERDAL [Suspect]
     Active Substance: RISPERIDONE
     Indication: AGGRESSION
     Route: 048
     Dates: start: 200308
  11. RISPERDAL [Suspect]
     Active Substance: RISPERIDONE
     Indication: AGGRESSION
     Route: 048
     Dates: start: 200312, end: 200402
  12. RISPERDAL [Suspect]
     Active Substance: RISPERIDONE
     Indication: NEGATIVISM
     Route: 048
     Dates: start: 201209, end: 201209
  13. RISPERDAL [Suspect]
     Active Substance: RISPERIDONE
     Indication: NEGATIVISM
     Route: 048
     Dates: start: 200308
  14. RISPERDAL [Suspect]
     Active Substance: RISPERIDONE
     Indication: NEGATIVISM
     Route: 048
     Dates: start: 200309, end: 200311
  15. RISPERDAL [Suspect]
     Active Substance: RISPERIDONE
     Indication: AGGRESSION
     Route: 048
     Dates: start: 201209, end: 201209
  16. RISPERDAL [Suspect]
     Active Substance: RISPERIDONE
     Indication: AGGRESSION
     Route: 048
     Dates: start: 200309, end: 200311
  17. RISPERDAL [Suspect]
     Active Substance: RISPERIDONE
     Indication: NEGATIVISM
     Route: 048
     Dates: start: 200404
  18. RISPERDAL [Suspect]
     Active Substance: RISPERIDONE
     Indication: NEGATIVISM
     Route: 048
     Dates: start: 201111
  19. RISPERDAL [Suspect]
     Active Substance: RISPERIDONE
     Indication: NEGATIVISM
     Route: 048
     Dates: start: 200312, end: 200402
  20. RISPERDAL [Suspect]
     Active Substance: RISPERIDONE
     Indication: PRODUCT USED FOR UNKNOWN INDICATION
     Route: 048
  21. RISPERIDONE. [Suspect]
     Active Substance: RISPERIDONE
     Indication: PRODUCT USED FOR UNKNOWN INDICATION
     Route: 048
  22. RISPERDAL [Suspect]
     Active Substance: RISPERIDONE
     Indication: AGGRESSION
     Route: 048
     Dates: start: 201204, end: 201207
  23. RISPERDAL [Suspect]
     Active Substance: RISPERIDONE
     Indication: NEGATIVISM
     Route: 048
     Dates: start: 201204, end: 201207
  24. RISPERDAL [Suspect]
     Active Substance: RISPERIDONE
     Indication: NEGATIVISM
     Route: 048
     Dates: start: 201011, end: 201108
  25. RISPERDAL [Suspect]
     Active Substance: RISPERIDONE
     Indication: NEGATIVISM
     Route: 048
     Dates: start: 201004, end: 201010
  26. RISPERDAL [Suspect]
     Active Substance: RISPERIDONE
     Indication: AGGRESSION
     Route: 048
     Dates: start: 201111
  27. RISPERDAL [Suspect]
     Active Substance: RISPERIDONE
     Indication: AGGRESSION
     Route: 048
     Dates: start: 201004, end: 201010
  28. RISPERDAL [Suspect]
     Active Substance: RISPERIDONE
     Indication: NEGATIVISM
     Route: 048
     Dates: start: 200409

REACTIONS (3)
  - Gynaecomastia [Unknown]
  - Inadequate diet [Unknown]
  - Abnormal weight gain [Unknown]

NARRATIVE: CASE EVENT DATE: 200708
